FAERS Safety Report 25173775 (Version 1)
Quarter: 2025Q2

REPORT INFORMATION
  Report Type: Spontaneous
  Country: US (occurrence: US)
  Receive Date: 20250408
  Receipt Date: 20250408
  Transmission Date: 20250716
  Serious: Yes (Other)
  Sender: MEDEXUS PHARMA
  Company Number: US-MEDEXUS PHARMA, INC.-2025MED00104

PATIENT
  Age: 70 Year
  Sex: Male

DRUGS (3)
  1. METHOTREXATE [Suspect]
     Active Substance: METHOTREXATE
     Indication: Rheumatoid arthritis
     Dosage: 2.5 MG, 1X/DAY
  2. METHOTREXATE [Suspect]
     Active Substance: METHOTREXATE
  3. TOFACITINIB [Concomitant]
     Active Substance: TOFACITINIB
     Indication: Rheumatoid arthritis
     Dosage: 5 MG, 2X/DAY

REACTIONS (2)
  - Angiocentric lymphoma [Recovered/Resolved]
  - Immunosuppression [Recovered/Resolved]
